FAERS Safety Report 9780393 (Version 2)
Quarter: 2014Q1

REPORT INFORMATION
  Report Type: Report from Study
  Country: JP (occurrence: JP)
  Receive Date: 20131224
  Receipt Date: 20140321
  Transmission Date: 20141002
  Serious: Yes (Hospitalization)
  Sender: FDA-Public Use
  Company Number: JP-009507513-1312JPN010005

PATIENT
  Sex: Male

DRUGS (3)
  1. DIAZOXIDE CAPSULES 25 MG ^MSD^ [Suspect]
     Indication: HYPOGLYCAEMIA
     Dosage: 4 MG, TID
     Route: 048
     Dates: start: 20130701, end: 20130705
  2. DIAZOXIDE CAPSULES 25 MG ^MSD^ [Suspect]
     Dosage: 6 MG IN MORNING AND ONE 5 MG FIVE MG OF, EVENING IN DAYTIME
     Route: 048
     Dates: start: 20130705, end: 20130717
  3. DIAZOXIDE CAPSULES 25 MG ^MSD^ [Suspect]
     Dosage: 4 MG IN MORNING AND ONE 3 MG THREE MG OF , EVENING IN DAYTIME
     Route: 048
     Dates: start: 20130717, end: 20130805

REACTIONS (5)
  - Adrenal insufficiency [Recovered/Resolved]
  - Fluid retention [Recovered/Resolved]
  - Cardiac failure [Recovered/Resolved]
  - Anaemia neonatal [Recovered/Resolved]
  - Hypothyroidism [Recovering/Resolving]
